FAERS Safety Report 9822967 (Version 1)
Quarter: 2014Q1

REPORT INFORMATION
  Report Type: Spontaneous
  Country: HU (occurrence: HU)
  Receive Date: 20140116
  Receipt Date: 20140116
  Transmission Date: 20141002
  Serious: Yes (Hospitalization)
  Sender: FDA-Public Use
  Company Number: US-ASTRAZENECA-2014SE02804

PATIENT
  Age: 8 Month
  Sex: Male

DRUGS (2)
  1. SYNAGIS [Suspect]
     Indication: ANTIVIRAL PROPHYLAXIS
     Dosage: SYNAGIS DOSE WAS GIVEN BASED ON BODY WEIGHT MONTHLY
     Route: 030
     Dates: start: 20131112
  2. SYNAGIS [Suspect]
     Indication: ANTIVIRAL PROPHYLAXIS
     Route: 030
     Dates: start: 20131213

REACTIONS (3)
  - Dyspnoea [Unknown]
  - Respiratory syncytial virus infection [Unknown]
  - Drug ineffective [Unknown]
